FAERS Safety Report 16542191 (Version 2)
Quarter: 2019Q3

REPORT INFORMATION
  Report Type: Spontaneous
  Country: US (occurrence: US)
  Receive Date: 20190708
  Receipt Date: 20190719
  Transmission Date: 20191004
  Serious: Yes (Other)
  Sender: FDA-Public Use
  Company Number: US-ALLERGAN-1926131US

PATIENT
  Sex: Female

DRUGS (2)
  1. ANTIHYPERTENSIVES [Concomitant]
     Active Substance: UNSPECIFIED INGREDIENT
     Indication: HYPERTENSION
     Dosage: UNK
  2. BOTOX COSMETIC [Suspect]
     Active Substance: ONABOTULINUMTOXINA
     Indication: SKIN WRINKLING
     Dosage: 2 UNITS, SINGLE
     Route: 042
     Dates: start: 20190621, end: 20190621

REACTIONS (13)
  - Eyelid sensory disorder [Unknown]
  - Conjunctivitis [Unknown]
  - Anxiety [Unknown]
  - Incorrect route of product administration [Unknown]
  - Visual impairment [Unknown]
  - Presyncope [Not Recovered/Not Resolved]
  - Vision blurred [Not Recovered/Not Resolved]
  - Pallor [Recovering/Resolving]
  - Dizziness [Not Recovered/Not Resolved]
  - Retinal detachment [Unknown]
  - Hypertensive crisis [Unknown]
  - Hypertension [Unknown]
  - Hyperhidrosis [Not Recovered/Not Resolved]

NARRATIVE: CASE EVENT DATE: 20190621
